FAERS Safety Report 12957348 (Version 2)
Quarter: 2016Q4

REPORT INFORMATION
  Report Type: Report from Study
  Country: IT (occurrence: IT)
  Receive Date: 20161118
  Receipt Date: 20161123
  Transmission Date: 20170207
  Serious: Yes (Life-Threatening, Hospitalization, Other)
  Sender: FDA-Public Use
  Company Number: IT-AMGEN-ITANI2016160191

PATIENT
  Age: 3 Year
  Sex: Male

DRUGS (2)
  1. CYCLOSPORIN [Suspect]
     Active Substance: CYCLOSPORINE
     Indication: JUVENILE IDIOPATHIC ARTHRITIS
     Dosage: UNK
     Route: 048
     Dates: end: 20081212
  2. ETANERCEPT [Suspect]
     Active Substance: ETANERCEPT
     Indication: JUVENILE IDIOPATHIC ARTHRITIS
     Dosage: 10 MG, WEEKLY
     Route: 058
     Dates: start: 20061106, end: 20081212

REACTIONS (2)
  - Varicella [Recovered/Resolved]
  - Purpura fulminans [Recovered/Resolved]

NARRATIVE: CASE EVENT DATE: 20081212
